FAERS Safety Report 10862956 (Version 1)
Quarter: 2015Q1

REPORT INFORMATION
  Report Type: Spontaneous
  Country: US (occurrence: US)
  Receive Date: 20150223
  Receipt Date: 20150223
  Transmission Date: 20150721
  Serious: No
  Sender: FDA-Public Use
  Company Number: US-CELGENEUS-163-21880-14064924

PATIENT
  Sex: Female
  Weight: 60.38 kg

DRUGS (3)
  1. XANAX [Concomitant]
     Active Substance: ALPRAZOLAM
     Indication: PRODUCT USED FOR UNKNOWN INDICATION
     Route: 065
  2. SYMBICORT [Concomitant]
     Active Substance: BUDESONIDE\FORMOTEROL FUMARATE DIHYDRATE
     Indication: PRODUCT USED FOR UNKNOWN INDICATION
     Route: 065
  3. REVLIMID [Suspect]
     Active Substance: LENALIDOMIDE
     Indication: MANTLE CELL LYMPHOMA
     Dosage: 10 MILLIGRAM
     Route: 048
     Dates: start: 201405

REACTIONS (9)
  - Chills [Unknown]
  - Fatigue [Unknown]
  - Dyspnoea [Unknown]
  - Malaise [Unknown]
  - Crying [Unknown]
  - Bronchitis [Unknown]
  - Cough [Unknown]
  - Pneumonia [Unknown]
  - Epistaxis [Unknown]

NARRATIVE: CASE EVENT DATE: 2014
